FAERS Safety Report 25506078 (Version 1)
Quarter: 2025Q3

REPORT INFORMATION
  Report Type: Spontaneous
  Country: US (occurrence: US)
  Receive Date: 20250702
  Receipt Date: 20250702
  Transmission Date: 20251020
  Serious: Yes (Other)
  Sender: RADIUS PHARM
  Company Number: US-RADIUS HEALTH INC.-2025US001064

PATIENT
  Sex: Female

DRUGS (1)
  1. TYMLOS [Suspect]
     Active Substance: ABALOPARATIDE
     Indication: Osteoporosis
     Route: 058

REACTIONS (6)
  - Nephrolithiasis [Unknown]
  - Back disorder [Unknown]
  - Pain in extremity [Unknown]
  - Headache [Unknown]
  - Bone pain [Unknown]
  - Product administered at inappropriate site [Unknown]
